FAERS Safety Report 5036722-1 (Version None)
Quarter: 2006Q2

REPORT INFORMATION
  Report Type: 
  Country: None (occurrence: None)
  Receive Date: 20060623
  Receipt Date: 20060615
  Transmission Date: 20061013
  Serious: Yes (Hospitalization)
  Sender: FDA-Public Use
  Company Number: 0601457US

PATIENT
  Age: 17 Year
  Sex: Female

DRUGS (3)
  1. BOTOX [Suspect]
     Indication: TORTICOLLIS
     Dosage: 60 UNITS, SINGLE, INTRAMUSCULAR
     Route: 030
     Dates: start: 20050517, end: 20050517
  2. VALPROATE SODIUM [Concomitant]
  3. CLONAZEPAM [Concomitant]

REACTIONS (2)
  - ASPIRATION [None]
  - MALAISE [None]
